FAERS Safety Report 10213359 (Version 1)
Quarter: 2014Q2

REPORT INFORMATION
  Report Type: Spontaneous
  Country: KR (occurrence: KR)
  Receive Date: 20140603
  Receipt Date: 20140603
  Transmission Date: 20141212
  Serious: Yes (Other)
  Sender: FDA-Public Use
  Company Number: KR-ACCORD-023979

PATIENT
  Age: 38 Year
  Sex: Male

DRUGS (2)
  1. TRAMADOL/TRAMADOL HYDROCHLORIDE [Suspect]
     Indication: PLEURITIC PAIN
  2. CEFIXIME/CEFIXIME TRIHYDRATE [Concomitant]

REACTIONS (3)
  - Drug withdrawal syndrome [Recovered/Resolved]
  - Insomnia [Unknown]
  - Restless legs syndrome [Recovered/Resolved]
